FAERS Safety Report 23864209 (Version 1)
Quarter: 2024Q2

REPORT INFORMATION
  Report Type: Report from Study
  Country: US (occurrence: US)
  Receive Date: 20240516
  Receipt Date: 20240516
  Transmission Date: 20240716
  Serious: Yes (Death, Other)
  Sender: FDA-Public Use
  Company Number: US-JAZZ PHARMACEUTICALS-2024-US-007539

PATIENT
  Age: 6 Year
  Sex: Female

DRUGS (2)
  1. EPIDIOLEX [Suspect]
     Active Substance: CANNABIDIOL
     Indication: Epilepsy
     Dosage: 250 MILLIGRAM (2.5 ML), BID
     Route: 048
     Dates: start: 20210127
  2. EPIDIOLEX [Suspect]
     Active Substance: CANNABIDIOL
     Dosage: 250 MILLIGRAM (2.5 ML), BID
     Route: 048
     Dates: start: 20210127

REACTIONS (1)
  - Death [Fatal]

NARRATIVE: CASE EVENT DATE: 20240509
